FAERS Safety Report 15124254 (Version 1)
Quarter: 2018Q3

REPORT INFORMATION
  Report Type: Spontaneous
  Country: GB (occurrence: GB)
  Receive Date: 20180710
  Receipt Date: 20180710
  Transmission Date: 20181010
  Serious: Yes (Life-Threatening)
  Sender: FDA-Public Use
  Company Number: GB-ABBVIE-18S-167-2412477-00

PATIENT
  Age: 79 Year
  Sex: Male

DRUGS (1)
  1. LEVOBUPIVACAINE [Suspect]
     Active Substance: LEVOBUPIVACAINE
     Indication: LOCAL ANAESTHESIA
     Dosage: 25MG/10ML
     Route: 065

REACTIONS (4)
  - Toxicity to various agents [Unknown]
  - Seizure [Unknown]
  - Loss of consciousness [Unknown]
  - Incorrect route of drug administration [Unknown]

NARRATIVE: CASE EVENT DATE: 20171217
